FAERS Safety Report 9452719 (Version 3)
Quarter: 2014Q2

REPORT INFORMATION
  Report Type: Report from Study
  Country: BR (occurrence: BR)
  Receive Date: 20130812
  Receipt Date: 20140528
  Transmission Date: 20141212
  Serious: Yes (Other)
  Sender: FDA-Public Use
  Company Number: PHHY2013BR085690

PATIENT
  Sex: Male
  Weight: 110 kg

DRUGS (5)
  1. SANDOSTATIN LAR [Suspect]
     Indication: ACROMEGALY
     Dosage: 30 MG, A MONTH
     Dates: start: 201201
  2. SANDOSTATIN LAR [Suspect]
     Dosage: EVERY 39 DAYS
  3. GALVUS MET [Suspect]
     Indication: DIABETES MELLITUS
     Dosage: 50/1000 MG, 2 TABLETS DAILY
  4. GALVUS [Concomitant]
     Dosage: UNK UKN, UNK
  5. METFORMIN [Concomitant]
     Dosage: UNK UKN, UNK

REACTIONS (5)
  - Sciatica [Not Recovered/Not Resolved]
  - Weight decreased [Not Recovered/Not Resolved]
  - Gait disturbance [Unknown]
  - Bone pain [Unknown]
  - Pain [Not Recovered/Not Resolved]
